FAERS Safety Report 4295029-0 (Version None)
Quarter: 2004Q1

REPORT INFORMATION
  Report Type: 
  Country: None (occurrence: None)
  Receive Date: 20040212
  Receipt Date: 20040212
  Transmission Date: 20041129
  Serious: No
  Sender: FDA-Public Use
  Company Number: None

PATIENT
  Age: 54 Year
  Sex: Female
  Weight: 55.7924 kg

DRUGS (1)
  1. ACTONEL [Suspect]
     Indication: OSTEOPOROSIS
     Dosage: ONE TABLET-WEEKLY
     Dates: start: 20030901, end: 20031101

REACTIONS (4)
  - FEELING ABNORMAL [None]
  - PAIN [None]
  - UNEVALUABLE EVENT [None]
  - URINARY TRACT INFECTION [None]
